FAERS Safety Report 4738947-9 (Version None)
Quarter: 2005Q3

REPORT INFORMATION
  Report Type: 
  Country: None (occurrence: None)
  Receive Date: 20050801
  Receipt Date: 20040625
  Transmission Date: 20060218
  Serious: Yes (Other)
  Sender: FDA-Public Use
  Company Number: 207453

PATIENT
  Age: 53 Year
  Sex: Female
  Weight: 74.5 kg

DRUGS (14)
  1. HERCEPTIN [Suspect]
     Indication: BREAST CANCER METASTATIC
     Dosage: 2 MG/KG, 1/WEEK, INTRAVENOUS
     Route: 042
  2. TAXOTERE [Concomitant]
  3. CARBOPLATIN [Concomitant]
  4. GLUCOTROL [Concomitant]
  5. HUMULIN R [Concomitant]
  6. ASPIRIN [Concomitant]
  7. WARFARIN SODIUM [Concomitant]
  8. DECADRON [Concomitant]
  9. VITAMIN E [Concomitant]
  10. VITAMIN C (ASCORBIC ACID) [Concomitant]
  11. CALCIUM (CALCIUM NOS) [Concomitant]
  12. ZINC (ZINC NOS) [Concomitant]
  13. MAGNESIUM SULFATE [Concomitant]
  14. ACETAMINOPHEN [Concomitant]

REACTIONS (1)
  - SUPRAVENTRICULAR TACHYCARDIA [None]
